FAERS Safety Report 17800444 (Version 1)
Quarter: 2020Q2

REPORT INFORMATION
  Report Type: Spontaneous
  Country: US (occurrence: US)
  Receive Date: 20200518
  Receipt Date: 20200518
  Transmission Date: 20200714
  Serious: Yes (Other)
  Sender: FDA-Public Use
  Company Number: NVSC2020US133903

PATIENT
  Age: 82 Year
  Sex: Female

DRUGS (1)
  1. BEOVU [Suspect]
     Active Substance: BROLUCIZUMAB-DBLL
     Indication: NEOVASCULAR AGE-RELATED MACULAR DEGENERATION
     Dosage: 1 DF, AS NEEDED
     Route: 047
     Dates: start: 20200403, end: 20200415

REACTIONS (1)
  - Vitritis [Recovered/Resolved]

NARRATIVE: CASE EVENT DATE: 20200403
